FAERS Safety Report 17291400 (Version 3)
Quarter: 2020Q1

REPORT INFORMATION
  Report Type: Spontaneous
  Country: JP (occurrence: JP)
  Receive Date: 20200121
  Receipt Date: 20200206
  Transmission Date: 20200409
  Serious: Yes (Death, Hospitalization, Other)
  Sender: FDA-Public Use
  Company Number: JP-AMGEN-JPNSP2020007853

PATIENT
  Age: 67 Year
  Sex: Female

DRUGS (10)
  1. COLCHICINE. [Concomitant]
     Active Substance: COLCHICINE
     Indication: SCLERODERMA
     Dosage: 0.5 (UNIT NOT PROVIDED), ONCE DAILY
     Dates: start: 20190903, end: 20191224
  2. ITRACONAZOLE. [Concomitant]
     Active Substance: ITRACONAZOLE
     Indication: CANDIDA INFECTION
     Dosage: 100 (UNIT NOT PROVIDED), ONCE DAILY
     Dates: start: 20191118, end: 20191224
  3. PREDNISOLONE. [Concomitant]
     Active Substance: PREDNISOLONE
     Indication: INTERSTITIAL LUNG DISEASE
     Dosage: 10 TO 30MG/DAY, DIVIDED TWO TO THREE DOSES
     Dates: start: 20190903, end: 20191224
  4. AUGMENTINE [AMOXICILLIN TRIHYDRATE;CLAVULANATE POTASSIUM] [Concomitant]
     Active Substance: AMOXICILLIN\CLAVULANATE POTASSIUM
     Indication: ORAL INFECTION
     Dosage: 1 TABLET, THRICE DAILY
     Dates: start: 20191129, end: 20191221
  5. SAWACILLIN [Concomitant]
     Active Substance: AMOXICILLIN
     Indication: ORAL INFECTION
     Dosage: 1 TABLET, THRICE DAILY
     Dates: start: 20191129, end: 20191221
  6. OFEV [Concomitant]
     Active Substance: NINTEDANIB
     Indication: INTERSTITIAL LUNG DISEASE
     Dosage: 150 MILLIGRAM, BID
     Dates: start: 20191111, end: 20191224
  7. DAIPHEN [Concomitant]
     Active Substance: SULFAMETHOXAZOLE\TRIMETHOPRIM
     Indication: PNEUMOCYSTIS JIROVECII PNEUMONIA
     Dosage: 1 MILLIGRAM, QD
     Dates: start: 20190903, end: 20191221
  8. TAKECAB [Concomitant]
     Active Substance: VONOPRAZAN FUMURATE
     Indication: GASTRITIS
     Dosage: 10 MILLIGRAM, QD
     Dates: start: 20190903, end: 20191224
  9. EVENITY [Suspect]
     Active Substance: ROMOSOZUMAB-AQQG
     Indication: OSTEOPOROSIS
     Dosage: 210 MILLIGRAM
     Route: 058
     Dates: start: 20191016
  10. CELLCEPT [Concomitant]
     Active Substance: MYCOPHENOLATE MOFETIL\MYCOPHENOLATE MOFETIL HYDROCHLORIDE
     Indication: INTERSTITIAL LUNG DISEASE
     Dosage: 750 (UNIT NOT PROVIDED), TWICE DAILY
     Dates: start: 20190903, end: 20191224

REACTIONS (4)
  - Interstitial lung disease [Fatal]
  - Oesophageal candidiasis [Unknown]
  - Malabsorption [Unknown]
  - Clostridium difficile colitis [Unknown]

NARRATIVE: CASE EVENT DATE: 20191119
